FAERS Safety Report 6514488-3 (Version None)
Quarter: 2009Q4

REPORT INFORMATION
  Report Type: 
  Country: None (occurrence: None)
  Receive Date: 20091223
  Receipt Date: 20091214
  Transmission Date: 20100525
  Serious: Yes (Other)
  Sender: FDA-Public Use
  Company Number: US-ELI_LILLY_AND_COMPANY-US200912004139

PATIENT
  Sex: Female

DRUGS (2)
  1. EVISTA [Suspect]
     Indication: OSTEOPOROSIS
     Dosage: 60 MG, UNKNOWN
     Route: 065
     Dates: start: 20060101
  2. ACTONEL [Concomitant]
     Indication: OSTEOPOROSIS
     Dosage: 150 UNK, UNKNOWN
     Route: 065

REACTIONS (1)
  - ENDOMETRIAL HYPERPLASIA [None]
